FAERS Safety Report 5709607-2 (Version None)
Quarter: 2008Q2

REPORT INFORMATION
  Report Type: 
  Country: None (occurrence: None)
  Receive Date: 20080418
  Receipt Date: 20080414
  Transmission Date: 20081010
  Serious: Yes (Other)
  Sender: FDA-Public Use
  Company Number: A0722601A

PATIENT
  Age: 55 Year
  Sex: Female

DRUGS (5)
  1. MEPRON [Suspect]
     Indication: BABESIOSIS
     Dosage: 2TSP TWICE PER DAY
     Route: 048
  2. FLUCONAZOLE [Suspect]
     Indication: DRUG USE FOR UNKNOWN INDICATION
  3. ZITHROMAX [Concomitant]
  4. NEUPOGEN [Concomitant]
  5. METFORMIN HCL [Concomitant]

REACTIONS (2)
  - MUSCULOSKELETAL CHEST PAIN [None]
  - NEUTROPENIA [None]
